FAERS Safety Report 6902576-9 (Version None)
Quarter: 2010Q3

REPORT INFORMATION
  Report Type: 
  Country: None (occurrence: None)
  Receive Date: 20100803
  Receipt Date: 20080603
  Transmission Date: 20110219
  Serious: No
  Sender: FDA-Public Use
  Company Number: US-PFIZER INC-2008047509

PATIENT
  Sex: Female
  Weight: 60 kg

DRUGS (5)
  1. LYRICA [Suspect]
     Indication: SPINAL COLUMN STENOSIS
     Dates: start: 20080401
  2. LYRICA [Suspect]
     Indication: SCIATICA
  3. SYNTHROID [Concomitant]
  4. EFFEXOR [Concomitant]
  5. ZOCOR [Concomitant]

REACTIONS (1)
  - DIARRHOEA [None]
